FAERS Safety Report 21093790 (Version 1)
Quarter: 2022Q3

REPORT INFORMATION
  Report Type: Spontaneous
  Country: US (occurrence: None)
  Receive Date: 20220716
  Receipt Date: 20220716
  Transmission Date: 20221027
  Serious: No
  Sender: FDA-Public Use
  Company Number: None

PATIENT
  Age: 39 Year
  Sex: Female
  Weight: 74.25 kg

DRUGS (2)
  1. PAXLOVID [Suspect]
     Active Substance: NIRMATRELVIR\RITONAVIR
     Indication: COVID-19
     Dosage: OTHER QUANTITY : 30 TABLET(S);?FREQUENCY : TWICE A DAY;?
     Route: 048
  2. CLONAZEPAM [Concomitant]
     Active Substance: CLONAZEPAM

REACTIONS (12)
  - Adverse drug reaction [None]
  - Dysgeusia [None]
  - Vomiting [None]
  - Nausea [None]
  - Retching [None]
  - Pyrexia [None]
  - Chills [None]
  - Insomnia [None]
  - Diarrhoea [None]
  - Drug intolerance [None]
  - Product formulation issue [None]
  - Product complaint [None]

NARRATIVE: CASE EVENT DATE: 20220714
